FAERS Safety Report 16023953 (Version 1)
Quarter: 2019Q1

REPORT INFORMATION
  Report Type: Report from Study
  Country: JP (occurrence: JP)
  Receive Date: 20190301
  Receipt Date: 20190301
  Transmission Date: 20190418
  Serious: Yes (Life-Threatening, Hospitalization, Other)
  Sender: FDA-Public Use
  Company Number: JP-JNJFOC-20190300428

PATIENT
  Age: 68 Year
  Sex: Male
  Weight: 62.7 kg

DRUGS (3)
  1. REVLIMID [Suspect]
     Active Substance: LENALIDOMIDE
     Indication: PLASMA CELL MYELOMA
     Route: 048
     Dates: start: 201702
  2. DECADRON [Suspect]
     Active Substance: DEXAMETHASONE
     Indication: PLASMA CELL MYELOMA
     Route: 065
     Dates: start: 201702, end: 20180307
  3. DARZALEX [Suspect]
     Active Substance: DARATUMUMAB
     Indication: PLASMA CELL MYELOMA
     Dosage: IN THE EVENING
     Route: 042
     Dates: start: 20180307, end: 20180307

REACTIONS (6)
  - Ventricular fibrillation [Not Recovered/Not Resolved]
  - Infusion related reaction [Recovered/Resolved]
  - Bundle branch block right [Unknown]
  - Ventricular arrhythmia [Recovered/Resolved]
  - Loss of consciousness [Recovered/Resolved]
  - Atrioventricular block first degree [Unknown]

NARRATIVE: CASE EVENT DATE: 20180307
